FAERS Safety Report 10699330 (Version 1)
Quarter: 2015Q1

REPORT INFORMATION
  Report Type: Spontaneous
  Country: US (occurrence: US)
  Receive Date: 20150109
  Receipt Date: 20150109
  Transmission Date: 20150721
  Serious: No
  Sender: FDA-Public Use
  Company Number: US-GILEAD-2015-0130318

PATIENT
  Age: 60 Year
  Sex: Female

DRUGS (1)
  1. HARVONI [Suspect]
     Active Substance: LEDIPASVIR\SOFOSBUVIR
     Indication: HEPATITIS C
     Dosage: 1 DF, QD
     Route: 048

REACTIONS (6)
  - Headache [Unknown]
  - Fatigue [Unknown]
  - Decreased appetite [Unknown]
  - Dizziness [Unknown]
  - Nausea [Unknown]
  - Weight decreased [Unknown]

NARRATIVE: CASE EVENT DATE: 201404
